FAERS Safety Report 4966793-X (Version None)
Quarter: 2006Q2

REPORT INFORMATION
  Report Type: 
  Country: None (occurrence: None)
  Receive Date: 20060407
  Receipt Date: 20050414
  Transmission Date: 20061013
  Serious: Yes (Death, Hospitalization)
  Sender: FDA-Public Use
  Company Number: US-MERCK-0504USA03098

PATIENT
  Age: 70 Year
  Sex: Male
  Weight: 73 kg

DRUGS (1)
  1. VIOXX [Suspect]
     Indication: PAIN
     Route: 048

REACTIONS (3)
  - CEREBROVASCULAR ACCIDENT [None]
  - LUNG NEOPLASM MALIGNANT [None]
  - PRESCRIBED OVERDOSE [None]
